FAERS Safety Report 25764279 (Version 1)
Quarter: 2025Q3

REPORT INFORMATION
  Report Type: Spontaneous
  Country: US (occurrence: US)
  Receive Date: 20250905
  Receipt Date: 20250905
  Transmission Date: 20251021
  Serious: No
  Sender: DOMPE FARMACEUTICI
  Company Number: US-FARMAPROD-202412-4332

PATIENT
  Sex: Female

DRUGS (16)
  1. OXERVATE [Suspect]
     Active Substance: CENEGERMIN-BKBJ
     Indication: Neurotrophic keratopathy
     Route: 047
     Dates: start: 20241209
  2. OXERVATE [Suspect]
     Active Substance: CENEGERMIN-BKBJ
     Indication: Exposure keratitis
  3. ONE-DAILY MULTI-VITAMIN [Concomitant]
  4. MELATONIN [Concomitant]
     Active Substance: MELATONIN
  5. MAGNESIUM SULFATE [Concomitant]
     Active Substance: MAGNESIUM SULFATE
  6. VITAMIN C [Concomitant]
     Active Substance: ASCORBIC ACID
  7. VITAMIN B12 [Concomitant]
     Active Substance: CYANOCOBALAMIN
  8. BIOTIN [Concomitant]
     Active Substance: BIOTIN
  9. FLAXSEED [Concomitant]
     Active Substance: FLAX SEED
  10. VITAMIN D3 [Concomitant]
     Active Substance: CHOLECALCIFEROL
  11. CALCIUM [Concomitant]
     Active Substance: CALCIUM
  12. HYDROCHLOROTHIAZIDE\LOSARTAN [Concomitant]
     Active Substance: HYDROCHLOROTHIAZIDE\LOSARTAN
  13. ACETAMINOPHEN\HYDROCODONE [Concomitant]
     Active Substance: ACETAMINOPHEN\HYDROCODONE
  14. REFRESH CLASSIC [Concomitant]
     Active Substance: POLYVINYL ALCOHOL\POVIDONE
  15. SYSTANE (HYPROMELLOSE 2910 (4000 MPA.S)) [Concomitant]
     Active Substance: HYPROMELLOSE 2910 (4000 MPA.S)
  16. MIEBO [Concomitant]
     Active Substance: PERFLUOROHEXYLOCTANE

REACTIONS (2)
  - Eye pain [Unknown]
  - Off label use [Unknown]
